FAERS Safety Report 17623240 (Version 1)
Quarter: 2020Q2

REPORT INFORMATION
  Report Type: Spontaneous
  Country: ES (occurrence: ES)
  Receive Date: 20200403
  Receipt Date: 20200403
  Transmission Date: 20200713
  Serious: Yes (Death)
  Sender: FDA-Public Use
  Company Number: ES-PUMA BIOTECHNOLOGY, LTD.-2020ES001934

PATIENT
  Sex: Female
  Weight: 40 kg

DRUGS (2)
  1. NERLYNX [Suspect]
     Active Substance: NERATINIB
     Indication: SARCOMA UTERUS
     Dosage: 240 MG, UNKNOWN
     Route: 048
     Dates: start: 202001
  2. NERLYNX [Suspect]
     Active Substance: NERATINIB
     Indication: METASTASES TO LUNG
     Dosage: 120 MG, UNKNOWN
     Route: 048
     Dates: start: 202001

REACTIONS (6)
  - Fatigue [Unknown]
  - Asthenia [Unknown]
  - Product use in unapproved indication [Unknown]
  - Off label use [Unknown]
  - Death [Fatal]
  - Diarrhoea [Unknown]

NARRATIVE: CASE EVENT DATE: 2020
